FAERS Safety Report 9682935 (Version 1)
Quarter: 2013Q4

REPORT INFORMATION
  Report Type: Spontaneous
  Country: US (occurrence: None)
  Receive Date: 20131111
  Receipt Date: 20131111
  Transmission Date: 20140711
  Serious: Yes (Other)
  Sender: FDA-Public Use
  Company Number: None

PATIENT
  Age: 66 Year
  Sex: Female
  Weight: 84 kg

DRUGS (2)
  1. DIPRIVAN [Suspect]
     Indication: SEDATION
     Route: 042
     Dates: start: 20131107, end: 20131107
  2. DIPRIVAN [Suspect]
     Indication: COLONOSCOPY
     Route: 042
     Dates: start: 20131107, end: 20131107

REACTIONS (2)
  - Drug effect incomplete [None]
  - Product lot number issue [None]
